FAERS Safety Report 11217137 (Version 1)
Quarter: 2015Q2

REPORT INFORMATION
  Report Type: Spontaneous
  Country: US (occurrence: US)
  Receive Date: 20150624
  Receipt Date: 20150624
  Transmission Date: 20150821
  Serious: No
  Sender: FDA-Public Use
  Company Number: US-SA-2015SA090752

PATIENT

DRUGS (1)
  1. KYNAMRO [Suspect]
     Active Substance: MIPOMERSEN SODIUM
     Route: 065

REACTIONS (2)
  - Injection site reaction [Unknown]
  - Liver function test abnormal [Unknown]
